FAERS Safety Report 7313871-6 (Version None)
Quarter: 2011Q1

REPORT INFORMATION
  Report Type: 
  Country: None (occurrence: None)
  Receive Date: 20110225
  Receipt Date: 20110218
  Transmission Date: 20110831
  Serious: Yes (Hospitalization, Other)
  Sender: FDA-Public Use
  Company Number: US-AMGEN-USASP2011004511

PATIENT
  Age: 58 Year
  Sex: Female
  Weight: 99.773 kg

DRUGS (1)
  1. ENBREL [Suspect]
     Indication: RHEUMATOID ARTHRITIS
     Dates: start: 20091201

REACTIONS (4)
  - ANXIETY [None]
  - ABDOMINAL PAIN UPPER [None]
  - RIB DEFORMITY [None]
  - SPINAL DISORDER [None]
